FAERS Safety Report 7674011-7 (Version None)
Quarter: 2011Q3

REPORT INFORMATION
  Report Type: 
  Country: None (occurrence: None)
  Receive Date: 20110810
  Receipt Date: 20110527
  Transmission Date: 20111222
  Serious: No
  Sender: FDA-Public Use
  Company Number: US-GLAXOSMITHKLINE-A0930444A

PATIENT
  Age: 60 Year
  Sex: Female

DRUGS (8)
  1. BYSTOLIC [Suspect]
     Indication: HYPERTENSION
     Dosage: 5MG PER DAY
     Route: 048
     Dates: start: 20110515
  2. AVALIDE [Concomitant]
  3. PROTONIX [Concomitant]
  4. CLONAZEPAM [Concomitant]
  5. PAXIL CR [Suspect]
     Indication: PANIC ATTACK
     Route: 065
  6. PLAVIX [Concomitant]
  7. ASPIRIN [Concomitant]
  8. LIPITOR [Concomitant]
     Dosage: 80MG PER DAY
     Route: 048

REACTIONS (4)
  - MALAISE [None]
  - INSOMNIA [None]
  - DRUG INTERACTION [None]
  - THINKING ABNORMAL [None]
